FAERS Safety Report 7336403-5 (Version None)
Quarter: 2011Q1

REPORT INFORMATION
  Report Type: 
  Country: None (occurrence: None)
  Receive Date: 20110307
  Receipt Date: 20110208
  Transmission Date: 20110831
  Serious: No
  Sender: FDA-Public Use
  Company Number: US-B.I. PHARMACEUTICALS,INC./RIDGEFIELD-2011-BP-04090BP

PATIENT
  Sex: Female

DRUGS (7)
  1. PREMARIN [Concomitant]
     Indication: MENOPAUSE
  2. ZYRTEC [Concomitant]
     Indication: ASTHMA
  3. PRADAXA [Suspect]
     Indication: ATRIAL FIBRILLATION
     Dosage: 300 MG
     Route: 048
     Dates: start: 20110204
  4. METOPROLOL [Concomitant]
     Indication: CARDIAC DISORDER
  5. MULTAQ [Concomitant]
     Indication: CARDIAC DISORDER
  6. ADVAIR DISKUS 100/50 [Concomitant]
     Indication: ASTHMA
  7. SIMVASTATIN [Concomitant]

REACTIONS (4)
  - PROCTALGIA [None]
  - CONSTIPATION [None]
  - ANORECTAL DISORDER [None]
  - ANORECTAL DISCOMFORT [None]
